FAERS Safety Report 18520346 (Version 13)
Quarter: 2022Q2

REPORT INFORMATION
  Report Type: Report from Study
  Country: IL (occurrence: IL)
  Receive Date: 20201118
  Receipt Date: 20220525
  Transmission Date: 20220720
  Serious: Yes (Death, Hospitalization)
  Sender: FDA-Public Use
  Company Number: IL-ABBVIE-20K-082-3652968-00

PATIENT
  Age: 63 Year
  Sex: Female
  Weight: 63.4 kg

DRUGS (34)
  1. VENETOCLAX [Suspect]
     Active Substance: VENETOCLAX
     Indication: Acute myeloid leukaemia
     Route: 048
     Dates: start: 20200802, end: 20200802
  2. VENETOCLAX [Suspect]
     Active Substance: VENETOCLAX
     Route: 048
     Dates: start: 20200803, end: 20200803
  3. VENETOCLAX [Suspect]
     Active Substance: VENETOCLAX
     Route: 048
     Dates: start: 20200804, end: 20200813
  4. VENETOCLAX [Suspect]
     Active Substance: VENETOCLAX
     Route: 048
     Dates: start: 20200816, end: 20200821
  5. VENETOCLAX [Suspect]
     Active Substance: VENETOCLAX
     Route: 048
     Dates: start: 20200822, end: 20200823
  6. VENETOCLAX [Suspect]
     Active Substance: VENETOCLAX
     Route: 048
     Dates: start: 20200906, end: 20200908
  7. VENETOCLAX [Suspect]
     Active Substance: VENETOCLAX
     Route: 048
     Dates: start: 20200909, end: 20200909
  8. VENETOCLAX [Suspect]
     Active Substance: VENETOCLAX
     Route: 048
     Dates: start: 20200910, end: 20200929
  9. VENETOCLAX [Suspect]
     Active Substance: VENETOCLAX
     Dosage: INTERRUPTION-COUNT RECOVERY
     Route: 048
     Dates: start: 20201108, end: 20201201
  10. VENETOCLAX [Suspect]
     Active Substance: VENETOCLAX
     Route: 048
     Dates: start: 20201206, end: 20201229
  11. VENETOCLAX [Suspect]
     Active Substance: VENETOCLAX
     Route: 048
     Dates: start: 20210103, end: 20210131
  12. VENETOCLAX [Suspect]
     Active Substance: VENETOCLAX
     Route: 048
     Dates: start: 20210207, end: 20210401
  13. DECITABINE [Suspect]
     Active Substance: DECITABINE
     Indication: Acute myeloid leukaemia
     Route: 042
     Dates: start: 20200802, end: 20200806
  14. DECITABINE [Suspect]
     Active Substance: DECITABINE
     Route: 042
     Dates: start: 20200906, end: 20200910
  15. DECITABINE [Suspect]
     Active Substance: DECITABINE
     Route: 042
     Dates: start: 20201011, end: 20201015
  16. DECITABINE [Suspect]
     Active Substance: DECITABINE
     Route: 042
     Dates: start: 20201108, end: 20201112
  17. DECITABINE [Suspect]
     Active Substance: DECITABINE
     Route: 042
     Dates: start: 20201206, end: 20201210
  18. DECITABINE [Suspect]
     Active Substance: DECITABINE
     Route: 042
     Dates: start: 20210103, end: 20210107
  19. NIVOLUMAB [Suspect]
     Active Substance: NIVOLUMAB
     Indication: Acute myeloid leukaemia
     Route: 042
     Dates: start: 20210408, end: 20210416
  20. SULFAMETHOXAZOLE\TRIMETHOPRIM [Concomitant]
     Active Substance: SULFAMETHOXAZOLE\TRIMETHOPRIM
     Indication: Antifungal prophylaxis
     Dates: start: 20200726
  21. LEVOTHYROXINE [Concomitant]
     Active Substance: LEVOTHYROXINE
     Indication: Hypothyroidism
     Dates: start: 2017
  22. AFATINIB [Concomitant]
     Active Substance: AFATINIB
     Indication: Lung neoplasm malignant
     Dates: start: 201910
  23. NEXIUM [Concomitant]
     Active Substance: ESOMEPRAZOLE MAGNESIUM
     Indication: Gastrooesophageal reflux disease
     Dates: start: 2018
  24. MAGNESIUM [Concomitant]
     Active Substance: MAGNESIUM
     Indication: Hypomagnesaemia
  25. NEUPOGEN [Concomitant]
     Active Substance: FILGRASTIM
     Indication: Neutropenia
     Dates: start: 202006
  26. PROBIOTICS NOS [Concomitant]
     Active Substance: PROBIOTICS NOS
     Indication: Product used for unknown indication
  27. ALLOPURINOL [Concomitant]
     Active Substance: ALLOPURINOL
     Indication: Prophylaxis
     Dates: start: 20200726, end: 20200810
  28. ACYCLOVIR [Concomitant]
     Active Substance: ACYCLOVIR
     Indication: Antiviral prophylaxis
  29. CEFTRIAXONE [Concomitant]
     Active Substance: CEFTRIAXONE
     Indication: Febrile neutropenia
     Dates: start: 20200802, end: 20200813
  30. AUGMENTIN [Concomitant]
     Active Substance: AMOXICILLIN\CLAVULANATE POTASSIUM
     Indication: Febrile neutropenia
     Dates: start: 20200802, end: 20200813
  31. FULVESTRANT [Concomitant]
     Active Substance: FULVESTRANT
     Indication: Breast cancer
  32. PFIZER-BIONTECH COVID-19 VACCINE [Concomitant]
     Active Substance: TOZINAMERAN
     Indication: COVID-19 immunisation
     Dates: start: 20201227, end: 20201227
  33. PFIZER-BIONTECH COVID-19 VACCINE [Concomitant]
     Active Substance: TOZINAMERAN
     Dates: start: 20210117, end: 20210117
  34. SULFAMETHOXAZOLE\TRIMETHOPRIM [Concomitant]
     Active Substance: SULFAMETHOXAZOLE\TRIMETHOPRIM
     Indication: Antifungal prophylaxis
     Dates: start: 20200726

REACTIONS (21)
  - Asthenia [Fatal]
  - Pyrexia [Fatal]
  - Fatigue [Fatal]
  - Campylobacter infection [Recovered/Resolved]
  - Skin infection [Recovered/Resolved]
  - Pneumonia [Recovered/Resolved]
  - Acute myeloid leukaemia [Fatal]
  - Febrile neutropenia [Recovered/Resolved]
  - Febrile neutropenia [Recovered/Resolved]
  - Hypokalaemia [Recovered/Resolved]
  - Hypokalaemia [Recovered/Resolved]
  - Mouth ulceration [Recovered/Resolved]
  - Muscle spasms [Recovered/Resolved]
  - Campylobacter gastroenteritis [Recovered/Resolved]
  - Spinal pain [Not Recovered/Not Resolved]
  - Pelvic pain [Not Recovered/Not Resolved]
  - Hypophosphataemia [Recovered/Resolved]
  - Neutropenia [Recovered/Resolved]
  - Constipation [Recovered/Resolved]
  - Diarrhoea [Recovered/Resolved]
  - Neutropenia [Recovered/Resolved]

NARRATIVE: CASE EVENT DATE: 20200805
